FAERS Safety Report 8419304-0 (Version None)
Quarter: 2012Q2

REPORT INFORMATION
  Report Type: 
  Country: None (occurrence: None)
  Receive Date: 20120607
  Receipt Date: 20120604
  Transmission Date: 20120825
  Serious: No
  Sender: FDA-Public Use
  Company Number: US-PFIZER INC-2012038848

PATIENT
  Sex: Female
  Weight: 63.492 kg

DRUGS (4)
  1. ATIVAN [Concomitant]
     Dosage: UNK
  2. PRISTIQ [Suspect]
     Indication: ANXIETY
     Dosage: 50 MG, 1X/DAY
     Route: 048
     Dates: start: 20120101, end: 20120130
  3. PRISTIQ [Suspect]
     Indication: DEPRESSION
     Dosage: 75 MG, 1X/DAY
     Route: 048
     Dates: start: 20120131, end: 20120101
  4. PRISTIQ [Suspect]
     Dosage: 50 MG, 1X/DAY
     Route: 048
     Dates: start: 20120101

REACTIONS (8)
  - SEDATION [None]
  - SOMNOLENCE [None]
  - DIZZINESS [None]
  - HEADACHE [None]
  - ANXIETY [None]
  - ACNE [None]
  - NAUSEA [None]
  - WEIGHT INCREASED [None]
